FAERS Safety Report 9033773 (Version 1)
Quarter: 2013Q1

REPORT INFORMATION
  Report Type: Spontaneous
  Country: US (occurrence: US)
  Receive Date: 20130128
  Receipt Date: 20130128
  Transmission Date: 20140127
  Serious: Yes (Other)
  Sender: FDA-Public Use
  Company Number: US-AMGEN-USASP2012074953

PATIENT
  Sex: Male
  Weight: 102.4 kg

DRUGS (12)
  1. ENBREL [Suspect]
     Indication: PRODUCT USED FOR UNKNOWN INDICATION
     Dosage: 50 MG, 2 TIMES/WK
     Route: 058
  2. CENTRUM SILVER                     /02363801/ [Concomitant]
     Dosage: UNK
  3. JANUVIA [Concomitant]
     Dosage: 25 MG, UNK
  4. EXFORGE [Concomitant]
     Dosage: 5-160 MG
  5. NEXIUM                             /01479302/ [Concomitant]
     Dosage: 40 MG, UNK
  6. PLAVIX [Concomitant]
     Dosage: 75 MG, UNK
  7. VITAMIN C                          /00008001/ [Concomitant]
     Dosage: 500 MG, UNK
  8. TESTOSTERONE CYPIONATE [Concomitant]
     Dosage: 100 MG/ML, UNK
  9. VITAMIN D /00107901/ [Concomitant]
     Dosage: 2000 UNIT, UNK
  10. FISH OIL [Concomitant]
     Dosage: UNK
  11. NAPROXEN [Concomitant]
     Dosage: UNK
  12. DILTIAZEM [Concomitant]
     Dosage: 120 MG, UNK

REACTIONS (3)
  - Cardiac pacemaker insertion [Recovered/Resolved]
  - Device related infection [Recovered/Resolved]
  - Blood testosterone decreased [Unknown]
